FAERS Safety Report 4909202-9 (Version None)
Quarter: 2006Q1

REPORT INFORMATION
  Report Type: 
  Country: None (occurrence: None)
  Receive Date: 20060209
  Receipt Date: 20060209
  Transmission Date: 20060701
  Serious: Yes (Other)
  Sender: FDA-Public Use
  Company Number: None

PATIENT
  Age: 33 Year
  Sex: Male
  Weight: 91 kg

DRUGS (17)
  1. TYGACIL [Suspect]
     Indication: STAPHYLOCOCCAL OSTEOMYELITIS
     Dosage: 50 MG Q 12 H IV
     Route: 042
     Dates: start: 20060130, end: 20060207
  2. LYRICA [Concomitant]
  3. LAMICTAL [Concomitant]
  4. ZANAFLEX [Concomitant]
  5. BACLOFEN [Concomitant]
  6. IMIPRAMINE [Concomitant]
  7. ASPIRIN [Concomitant]
  8. FOSAMAX [Concomitant]
  9. BISACODYL [Concomitant]
  10. DOCUSATE [Concomitant]
  11. CERTAGEN [Concomitant]
  12. IBUPROFEN [Concomitant]
  13. HYDROXYZINE PAMOATE [Concomitant]
  14. LORTAB [Concomitant]
  15. OXYBUTYNIN [Concomitant]
  16. NORMAL SALINE FLUSH [Concomitant]
  17. HEPARIN LOCK-FLUSH [Concomitant]

REACTIONS (3)
  - BLADDER SPASM [None]
  - DISCOMFORT [None]
  - DYSGEUSIA [None]
